FAERS Safety Report 5214859-1 (Version None)
Quarter: 2007Q1

REPORT INFORMATION
  Report Type: 
  Country: None (occurrence: None)
  Receive Date: 20061107
  Receipt Date: 20060606
  Transmission Date: 20070707
  Serious: No
  Sender: FDA-Public Use
  Company Number: 200614011BWH

PATIENT
  Age: 69 Year
  Sex: Male

DRUGS (2)
  1. LAVITRA (VARDENAFIL HYDROCHLORIDE) [Suspect]
     Indication: ERECTILE DYSFUNCTION
     Dosage: ORAL
     Route: 048
  2. HIGH BLOOD PRESSURE MEDICATION NOS [Concomitant]

REACTIONS (1)
  - ERECTILE DYSFUNCTION [None]
